FAERS Safety Report 15099003 (Version 1)
Quarter: 2018Q3

REPORT INFORMATION
  Report Type: Spontaneous
  Country: JP (occurrence: JP)
  Receive Date: 20180702
  Receipt Date: 20180702
  Transmission Date: 20181010
  Serious: Yes (Death)
  Sender: FDA-Public Use
  Company Number: JP-NOVOPROD-607710

PATIENT
  Age: 88 Year
  Sex: Male
  Weight: 40 kg

DRUGS (8)
  1. NOVOSEVEN [Suspect]
     Active Substance: COAGULATION FACTOR VIIA RECOMBINANT HUMAN
     Dosage: 2MG AT 8:00
     Route: 042
     Dates: start: 20180618
  2. TRANSAMIN [Concomitant]
     Active Substance: TRANEXAMIC ACID
     Indication: ACQUIRED HAEMOPHILIA
     Dosage: UNK
     Route: 065
     Dates: start: 201805
  3. PREDNISOLONE. [Concomitant]
     Active Substance: PREDNISOLONE
     Indication: FACTOR VIII INHIBITION
     Dosage: UNK
     Route: 065
     Dates: start: 20180511
  4. NOVOSEVEN [Suspect]
     Active Substance: COAGULATION FACTOR VIIA RECOMBINANT HUMAN
     Indication: MOUTH HAEMORRHAGE
     Dosage: 2 MG 1 VIAL
     Route: 042
     Dates: start: 20180602
  5. NOVOSEVEN [Suspect]
     Active Substance: COAGULATION FACTOR VIIA RECOMBINANT HUMAN
     Dosage: 2MG AT 9:00
     Route: 042
     Dates: start: 20180619
  6. NOVOSEVEN [Suspect]
     Active Substance: COAGULATION FACTOR VIIA RECOMBINANT HUMAN
     Indication: HAEMOPTYSIS
     Dosage: 2 MG AT 13:00, 17:00, 24:00.
     Route: 042
     Dates: start: 20180617
  7. NOVOSEVEN [Suspect]
     Active Substance: COAGULATION FACTOR VIIA RECOMBINANT HUMAN
     Indication: ACQUIRED HAEMOPHILIA
     Dosage: 2  MG 1 TIME
     Route: 042
     Dates: start: 20180518
  8. NOVOSEVEN [Suspect]
     Active Substance: COAGULATION FACTOR VIIA RECOMBINANT HUMAN
     Indication: TRAUMATIC HAEMORRHAGE
     Dosage: 2 MG 1 VIAL
     Route: 042
     Dates: start: 20180603

REACTIONS (1)
  - Pulmonary alveolar haemorrhage [Fatal]

NARRATIVE: CASE EVENT DATE: 20180617
